FAERS Safety Report 15315302 (Version 3)
Quarter: 2019Q2

REPORT INFORMATION
  Report Type: Report from Study
  Country: CA (occurrence: CA)
  Receive Date: 20180824
  Receipt Date: 20190513
  Transmission Date: 20190711
  Serious: Yes (Hospitalization, Other)
  Sender: FDA-Public Use
  Company Number: CA-BRISTOL-MYERS SQUIBB COMPANY-BMS-2018-070424

PATIENT
  Age: 62 Year
  Sex: Female

DRUGS (1)
  1. ABATACEPT [Suspect]
     Active Substance: ABATACEPT
     Indication: RHEUMATOID ARTHRITIS
     Dosage: 125 MG, QWK
     Route: 058
     Dates: start: 20180720

REACTIONS (8)
  - Atrial fibrillation [Recovered/Resolved]
  - Ear pain [Unknown]
  - Cold sweat [Recovered/Resolved]
  - Chills [Recovered/Resolved]
  - Influenza like illness [Unknown]
  - Nausea [Recovered/Resolved]
  - Lichen planus [Recovering/Resolving]
  - Middle ear effusion [Unknown]

NARRATIVE: CASE EVENT DATE: 20180720
